FAERS Safety Report 5151470-5 (Version None)
Quarter: 2006Q4

REPORT INFORMATION
  Report Type: 
  Country: None (occurrence: None)
  Receive Date: 20061115
  Receipt Date: 20061107
  Transmission Date: 20070319
  Serious: Yes (Other)
  Sender: FDA-Public Use
  Company Number: NL-SANOFI-SYNTHELABO-A01200609451

PATIENT
  Sex: Male

DRUGS (3)
  1. AVASTIN [Concomitant]
     Indication: COLORECTAL CANCER
     Dosage: UNK
     Route: 042
  2. XELODA [Concomitant]
     Indication: COLORECTAL CANCER
     Dosage: UNK
     Route: 048
  3. ELOXATIN [Suspect]
     Indication: COLORECTAL CANCER
     Dosage: UNK
     Route: 042

REACTIONS (1)
  - TRANSIENT ISCHAEMIC ATTACK [None]
